FAERS Safety Report 8607261-3 (Version None)
Quarter: 2012Q3

REPORT INFORMATION
  Report Type: 
  Country: None (occurrence: None)
  Receive Date: 20120821
  Receipt Date: 20120814
  Transmission Date: 20120928
  Serious: No
  Sender: FDA-Public Use
  Company Number: US-B.I. PHARMACEUTICALS,INC./RIDGEFIELD-2012-BP-19275BP

PATIENT
  Sex: Female

DRUGS (2)
  1. AMIODARONE HCL [Concomitant]
     Indication: HEART RATE DECREASED
     Dosage: 200 MG
     Route: 048
     Dates: start: 20120601
  2. PRADAXA [Suspect]
     Indication: CARDIAC DISORDER
     Dosage: 300 MG
     Route: 048
     Dates: start: 20120601

REACTIONS (7)
  - VULVOVAGINAL PRURITUS [None]
  - GAIT DISTURBANCE [None]
  - NECK PAIN [None]
  - FALL [None]
  - CONTUSION [None]
  - ASTHENIA [None]
  - HEAD INJURY [None]
